FAERS Safety Report 24715876 (Version 1)
Quarter: 2024Q4

REPORT INFORMATION
  Report Type: Spontaneous
  Country: US (occurrence: US)
  Receive Date: 20241210
  Receipt Date: 20241210
  Transmission Date: 20250115
  Serious: No
  Sender: AMGEN
  Company Number: US-AMGEN-USASP2024238007

PATIENT

DRUGS (3)
  1. REPATHA [Suspect]
     Active Substance: EVOLOCUMAB
     Indication: Product used for unknown indication
     Dosage: UNK
     Route: 065
  2. BEMPEDOIC ACID [Concomitant]
     Active Substance: BEMPEDOIC ACID
  3. LEQVIO [Concomitant]
     Active Substance: INCLISIRAN SODIUM

REACTIONS (3)
  - Hepatic pain [Not Recovered/Not Resolved]
  - Depression [Not Recovered/Not Resolved]
  - Blood creatine phosphokinase increased [Unknown]
